FAERS Safety Report 6404158-4 (Version None)
Quarter: 2009Q4

REPORT INFORMATION
  Report Type: 
  Country: None (occurrence: None)
  Receive Date: 20091013
  Receipt Date: 20090928
  Transmission Date: 20100525
  Serious: Yes (Hospitalization)
  Sender: FDA-Public Use
  Company Number: 2009002945

PATIENT
  Age: 78 Year
  Sex: Male

DRUGS (9)
  1. TARCEVA [Suspect]
     Indication: BRONCHIOLOALVEOLAR CARCINOMA
     Dosage: 150 MG, QD, ORAL, 75 MG, QD, ORAL
     Route: 048
  2. DOXYCYCLINE [Concomitant]
  3. NEORAL [Concomitant]
  4. ASPIRIN [Concomitant]
  5. MEDIATOR (BENFLUOREX HYDROCHLORIDE) [Concomitant]
  6. NIFEDIPINE [Concomitant]
  7. RAMIPRIL [Concomitant]
  8. ATORVASTATIN CALCIUM [Concomitant]
  9. TANAKAN (GINKGO TREE LEAVES EXTRACT) [Concomitant]

REACTIONS (3)
  - ACNE [None]
  - BASAL CELL CARCINOMA [None]
  - ULCER [None]
